FAERS Safety Report 8774361 (Version 1)
Quarter: 2012Q4

REPORT INFORMATION
  Report Type: 
  Country: US (occurrence: US)
  Receive Date: 20120907
  Receipt Date: 20120907
  Transmission Date: 20130627
  Serious: No
  Sender: FDA-Public Use
  Company Number: US-009507513-1209USA000656

PATIENT

DRUGS (1)
  1. INTRONA [Suspect]
     Dosage: 2 ml, UNK

REACTIONS (2)
  - Influenza like illness [Unknown]
  - Drug administration error [Unknown]
